FAERS Safety Report 10059889 (Version 1)
Quarter: 2014Q2

REPORT INFORMATION
  Report Type: Spontaneous
  Country: US (occurrence: US)
  Receive Date: 20140404
  Receipt Date: 20140404
  Transmission Date: 20141212
  Serious: No
  Sender: FDA-Public Use
  Company Number: US-PFIZER INC-2014094809

PATIENT
  Sex: Female

DRUGS (2)
  1. CELEBREX [Suspect]
     Indication: BACK PAIN
     Dosage: UNK
     Dates: start: 20140320
  2. NAPROXEN SODIUM [Suspect]
     Dosage: UNK
     Dates: start: 201401

REACTIONS (2)
  - Palpitations [Unknown]
  - Palpitations [Unknown]
